FAERS Safety Report 5008268-8 (Version None)
Quarter: 2006Q2

REPORT INFORMATION
  Report Type: 
  Country: None (occurrence: None)
  Receive Date: 20060523
  Receipt Date: 20050520
  Transmission Date: 20061013
  Serious: Yes (Other)
  Sender: FDA-Public Use
  Company Number: US-GLAXOSMITHKLINE-A0559572A

PATIENT
  Sex: Female

DRUGS (8)
  1. FLOLAN [Suspect]
     Route: 042
  2. IMMUNE GLOBULIN INTRAVENOUS (HUMAN) [Concomitant]
  3. COUMADIN [Concomitant]
  4. HYDROCHLOROTHIAZIDE [Concomitant]
  5. PROTONIX [Concomitant]
  6. NORVASC [Concomitant]
  7. LABETALOL [Concomitant]
  8. AZATHIOPRINE [Concomitant]

REACTIONS (1)
  - THROMBOCYTOPENIA [None]
